FAERS Safety Report 14640977 (Version 1)
Quarter: 2018Q1

REPORT INFORMATION
  Report Type: Spontaneous
  Country: US (occurrence: US)
  Receive Date: 20180315
  Receipt Date: 20180315
  Transmission Date: 20180509
  Serious: No
  Sender: FDA-Public Use
  Company Number: US-PFIZER INC-2018104997

PATIENT
  Sex: Female

DRUGS (3)
  1. GABAPENTIN. [Suspect]
     Active Substance: GABAPENTIN
     Indication: TONGUE DISCOMFORT
     Dosage: 300 MG, 1X/DAY (ONE PILL EACH DAY)
  2. GABAPENTIN. [Suspect]
     Active Substance: GABAPENTIN
     Indication: HYPOAESTHESIA ORAL
     Dosage: 300 MG, 2X/DAY (THE FOURTH DAY, SHE TOOK TWO, ONE IN THE MORNING AND ONE IN THE EVENING)
  3. GABAPENTIN. [Suspect]
     Active Substance: GABAPENTIN
     Dosage: 300 MG, 1X/DAY

REACTIONS (3)
  - Myalgia [Unknown]
  - Product use in unapproved indication [Unknown]
  - Nocturia [Unknown]
